FAERS Safety Report 13821072 (Version 2)
Quarter: 2017Q3

REPORT INFORMATION
  Report Type: Spontaneous
  Country: JP (occurrence: JP)
  Receive Date: 20170801
  Receipt Date: 20170822
  Transmission Date: 20171127
  Serious: Yes (Other)
  Sender: FDA-Public Use
  Company Number: JP-GALDERMA-JP16005673

PATIENT
  Age: 81 Year
  Sex: Male

DRUGS (3)
  1. NON GALDERMA PRODUCT METRONIDAZOLE [Suspect]
     Active Substance: METRONIDAZOLE
     Indication: SKIN ULCER
     Route: 061
     Dates: start: 201608, end: 201610
  2. ACETAMINOPHEN. [Concomitant]
     Active Substance: ACETAMINOPHEN
     Indication: PAIN
     Route: 065
     Dates: start: 201608
  3. NSAIDS [Concomitant]
     Active Substance: UNSPECIFIED INGREDIENT
     Indication: PAIN
     Route: 065
     Dates: start: 201608

REACTIONS (3)
  - Haemorrhage [Not Recovered/Not Resolved]
  - Skin odour abnormal [Unknown]
  - Condition aggravated [Unknown]
